FAERS Safety Report 8166970-3 (Version None)
Quarter: 2012Q1

REPORT INFORMATION
  Report Type: 
  Country: None (occurrence: None)
  Receive Date: 20120227
  Receipt Date: 20120220
  Transmission Date: 20120608
  Serious: Yes (Death)
  Sender: FDA-Public Use
  Company Number: ES-UCBSA-051959

PATIENT
  Age: 69 Year
  Sex: Female

DRUGS (1)
  1. KEPPRA [Suspect]
     Indication: EPILEPSY
     Dosage: DRUG STRENGTH: 500 MG
     Route: 048
     Dates: start: 20110117

REACTIONS (2)
  - EPIGASTRIC DISCOMFORT [None]
  - CARDIOPULMONARY FAILURE [None]
